FAERS Safety Report 20015416 (Version 1)
Quarter: 2021Q4

REPORT INFORMATION
  Report Type: Spontaneous
  Country: US (occurrence: None)
  Receive Date: 20211030
  Receipt Date: 20211030
  Transmission Date: 20220303
  Serious: Yes (Disabling)
  Sender: FDA-Public Use
  Company Number: None

PATIENT
  Age: 41 Year
  Sex: Female
  Weight: 114.75 kg

DRUGS (1)
  1. REMDESIVIR [Suspect]
     Active Substance: REMDESIVIR
     Indication: COVID-19 pneumonia
     Dosage: FREQUENCY : DAILY;?
     Route: 042
     Dates: start: 20210825, end: 20210902

REACTIONS (13)
  - Urticaria [None]
  - Blister [None]
  - Breast disorder [None]
  - Diabetes mellitus [None]
  - Muscle spasms [None]
  - Insomnia [None]
  - Muscular weakness [None]
  - Feeling abnormal [None]
  - Pollakiuria [None]
  - Hypertension [None]
  - Anaemia [None]
  - White blood cell count increased [None]
  - Red blood cell morphology abnormal [None]

NARRATIVE: CASE EVENT DATE: 20210825
